FAERS Safety Report 4971694-7 (Version None)
Quarter: 2006Q2

REPORT INFORMATION
  Report Type: 
  Country: None (occurrence: None)
  Receive Date: 20060407
  Receipt Date: 20060331
  Transmission Date: 20061013
  Serious: Yes (Death, Life-Threatening, Other)
  Sender: FDA-Public Use
  Company Number: 2006-03-0677

PATIENT
  Age: 49 Year
  Sex: Male

DRUGS (2)
  1. PROVENTIL [Suspect]
     Indication: ASTHMA
     Dosage: ORAL AER INH
     Route: 055
  2. PROVENTIL [Suspect]
     Indication: CONDITION AGGRAVATED
     Dosage: ORAL AER INH
     Route: 055

REACTIONS (9)
  - ANOXIA [None]
  - CARDIAC ARREST [None]
  - ELECTROMECHANICAL DISSOCIATION [None]
  - EXTRASYSTOLES [None]
  - FALL [None]
  - LOSS OF CONSCIOUSNESS [None]
  - MALAISE [None]
  - VENTRICULAR FIBRILLATION [None]
  - VENTRICULAR TACHYCARDIA [None]
